FAERS Safety Report 6181346-6 (Version None)
Quarter: 2009Q2

REPORT INFORMATION
  Report Type: 
  Country: None (occurrence: None)
  Receive Date: 20090506
  Receipt Date: 20090424
  Transmission Date: 20091009
  Serious: Yes (Hospitalization)
  Sender: FDA-Public Use
  Company Number: PHHY2009FR11712

PATIENT
  Sex: Male

DRUGS (5)
  1. NISIS [Suspect]
     Indication: HYPERTENSION
     Dosage: 160 MG, QD
     Route: 048
     Dates: start: 20071201
  2. ANAFRANIL [Suspect]
     Indication: DEPRESSION
     Dosage: 20 MG, QD
     Route: 048
     Dates: start: 20070301
  3. YOHIMBINE ^HOUDE^ [Suspect]
     Dosage: UNK
     Route: 048
     Dates: start: 20070101, end: 20080201
  4. VALPROMIDE [Suspect]
     Indication: DEPRESSION
     Dosage: 300 MG, TID
     Route: 048
  5. TRANXENE [Concomitant]
     Indication: DEPRESSION

REACTIONS (7)
  - ABDOMINAL PAIN [None]
  - FATIGUE [None]
  - LYMPHADENOPATHY [None]
  - MASS [None]
  - RETROPERITONEAL FIBROSIS [None]
  - VEIN DISORDER [None]
  - WEIGHT DECREASED [None]
